FAERS Safety Report 18000852 (Version 1)
Quarter: 2020Q3

REPORT INFORMATION
  Report Type: Spontaneous
  Country: CN (occurrence: CN)
  Receive Date: 20200709
  Receipt Date: 20200709
  Transmission Date: 20201103
  Serious: Yes (Other)
  Sender: FDA-Public Use
  Company Number: CN-LUPIN PHARMACEUTICALS INC.-2020-01756

PATIENT
  Sex: Male

DRUGS (11)
  1. PREDNISOLONE. [Suspect]
     Active Substance: PREDNISOLONE
     Indication: SEIZURE
     Dosage: 2 MILLIGRAM/KILOGRAM, QD
     Route: 048
  2. SODIUM VALPROATE [Suspect]
     Active Substance: VALPROATE SODIUM
     Indication: SEIZURE
     Dosage: 18.4 MILLIGRAM/KILOGRAM, QD
     Route: 065
  3. LEVETIRACETAM. [Suspect]
     Active Substance: LEVETIRACETAM
     Indication: SEIZURE
     Dosage: 20 MILLIGRAM/KILOGRAM, QD
     Route: 065
  4. LAMOTRIGINE. [Suspect]
     Active Substance: LAMOTRIGINE
     Indication: SEIZURE
  5. TOPIRAMAT [Suspect]
     Active Substance: TOPIRAMATE
     Indication: PRODUCT USED FOR UNKNOWN INDICATION
     Dosage: 1.92 MILLIGRAM/KILOGRAM, QD
     Route: 065
  6. NITRAZEPAM [Suspect]
     Active Substance: NITRAZEPAM
     Indication: SEIZURE
     Dosage: 0.48 MILLIGRAM/KILOGRAM, QD
     Route: 065
  7. NITRAZEPAM [Suspect]
     Active Substance: NITRAZEPAM
     Dosage: 1.44 MILLIGRAM/KILOGRAM, QD
     Route: 065
  8. LAMOTRIGINE. [Suspect]
     Active Substance: LAMOTRIGINE
     Indication: SEIZURE
  9. LAMOTRIGINE. [Suspect]
     Active Substance: LAMOTRIGINE
     Indication: SEIZURE
     Dosage: 0.67 MILLIGRAM/KILOGRAM, QD
     Route: 065
  10. VIGABATRIN. [Suspect]
     Active Substance: VIGABATRIN
     Indication: SEIZURE
     Dosage: 38.46 MILLIGRAM/KILOGRAM, QD
     Route: 065
  11. ADRENOCORTICOTROPHIC HORMONE [Suspect]
     Active Substance: CORTICOTROPIN
     Indication: SEIZURE
     Dosage: 1 U/ KG, TWICE DAILY FOR 1 WEEK THEN INCREASE TO 2 U/KG, TWICE DAILY FOR 1 WEEK
     Route: 030

REACTIONS (3)
  - Seizure [Unknown]
  - Rash [Recovered/Resolved]
  - Therapeutic product effect incomplete [Unknown]
